FAERS Safety Report 8458949-9 (Version None)
Quarter: 2012Q2

REPORT INFORMATION
  Report Type: 
  Country: None (occurrence: None)
  Receive Date: 20120622
  Receipt Date: 20120612
  Transmission Date: 20120825
  Serious: Yes (Disabling)
  Sender: FDA-Public Use
  Company Number: US-ROCHE-1067429

PATIENT
  Sex: Female
  Weight: 73.027 kg

DRUGS (7)
  1. WARFARIN SODIUM [Concomitant]
     Route: 048
  2. SODIUM CHLORIDE [Concomitant]
     Dosage: 2 SPRAYS FOURS DAILY AS NEEDED
  3. VISMODEGIB [Suspect]
     Indication: BASAL CELL CARCINOMA
     Route: 048
     Dates: start: 20111208, end: 20120209
  4. LOVENOX [Concomitant]
     Dosage: 80MG/0.8 ML
  5. WARFARIN SODIUM [Concomitant]
  6. ACETAMINOPHEN [Concomitant]
     Route: 048
  7. VITAMIN D [Concomitant]
     Route: 048

REACTIONS (2)
  - GROIN PAIN [None]
  - CATHETER SITE PAIN [None]
